FAERS Safety Report 13622309 (Version 2)
Quarter: 2018Q3

REPORT INFORMATION
  Report Type: Spontaneous
  Country: SG (occurrence: SG)
  Receive Date: 20170607
  Receipt Date: 20180726
  Transmission Date: 20181010
  Serious: Yes (Other)
  Sender: FDA-Public Use
  Company Number: SG-LUPIN PHARMACEUTICALS INC.-2017-02916

PATIENT
  Age: 47 Year
  Sex: Female

DRUGS (2)
  1. QUETIAPINE. [Suspect]
     Active Substance: QUETIAPINE
     Indication: MANIA
  2. QUETIAPINE. [Suspect]
     Active Substance: QUETIAPINE
     Indication: BIPOLAR DISORDER
     Dosage: 100 MG, (IMMEDIATE?RELEASE; AT NIGHT)
     Route: 065
     Dates: start: 20160310, end: 20160311

REACTIONS (8)
  - Vomiting [Unknown]
  - Haematemesis [Unknown]
  - Dizziness [Recovered/Resolved]
  - Skull fracture [Unknown]
  - Neck pain [Unknown]
  - Vertigo [Unknown]
  - Epistaxis [Unknown]
  - Fall [Unknown]

NARRATIVE: CASE EVENT DATE: 20160311
